FAERS Safety Report 8387459-2 (Version None)
Quarter: 2012Q2

REPORT INFORMATION
  Report Type: 
  Country: None (occurrence: None)
  Receive Date: 20120525
  Receipt Date: 20120522
  Transmission Date: 20120825
  Serious: Yes (Life-Threatening, Hospitalization)
  Sender: FDA-Public Use
  Company Number: PHFR2012GB003071

PATIENT
  Age: 27 Year
  Sex: Female

DRUGS (13)
  1. ADCAL-D3 [Concomitant]
  2. LORATADINE [Concomitant]
  3. LEVOTHYROXINE SODIUM [Concomitant]
  4. ACETAMINOPHEN [Concomitant]
  5. RANITIDINE [Concomitant]
  6. HYOSCINE BUTYLBROMIDE [Concomitant]
  7. GAVISCON [Concomitant]
  8. HYDROXOCOBALAMIN [Concomitant]
  9. EXJADE [Suspect]
     Indication: IRON OVERLOAD
     Dosage: 1250 MG, DAILY
     Route: 048
     Dates: start: 20071003
  10. DOMPERIDONE [Concomitant]
  11. PREMPAK C [Concomitant]
     Indication: GONADOTROPHIN DEFICIENCY
  12. EXJADE [Suspect]
     Dosage: UNK UKN, UNK
     Route: 048
  13. IBUPROFEN [Concomitant]

REACTIONS (15)
  - DEHYDRATION [None]
  - BRAIN OEDEMA [None]
  - METABOLIC DISORDER [None]
  - ENCEPHALOPATHY [None]
  - UNRESPONSIVE TO STIMULI [None]
  - ADRENAL INSUFFICIENCY [None]
  - DEPRESSED LEVEL OF CONSCIOUSNESS [None]
  - HYPOGLYCAEMIA [None]
  - ENCEPHALITIS [None]
  - HYPOTHERMIA [None]
  - DEEP VEIN THROMBOSIS [None]
  - LACTIC ACIDOSIS [None]
  - YERSINIA INFECTION [None]
  - CEREBRAL DISORDER [None]
  - VOMITING [None]
